FAERS Safety Report 4607360-7 (Version None)
Quarter: 2005Q1

REPORT INFORMATION
  Report Type: 
  Country: None (occurrence: None)
  Receive Date: 20050310
  Receipt Date: 20050224
  Transmission Date: 20050727
  Serious: Yes (Death, Hospitalization, Other)
  Sender: FDA-Public Use
  Company Number: 2005BI001807

PATIENT
  Age: 66 Year
  Sex: Female

DRUGS (9)
  1. ZEVALIN [Suspect]
     Indication: NON-HODGKIN'S LYMPHOMA
     Dosage: SEE IMAGE; IV
     Route: 042
     Dates: start: 20041111, end: 20041111
  2. ZEVALIN [Suspect]
     Indication: NON-HODGKIN'S LYMPHOMA
     Dosage: SEE IMAGE; IV
     Route: 042
     Dates: start: 20041118, end: 20041118
  3. ZEVALIN [Suspect]
     Indication: NON-HODGKIN'S LYMPHOMA
     Dosage: SEE IMAGE; IV
     Route: 042
     Dates: start: 20041118, end: 20041118
  4. GRANULOCYTE COLONY [Concomitant]
  5. STIMULATING FACTOR [Concomitant]
  6. CYCLOPHOSPHAMIDE [Concomitant]
  7. PREDNISONE [Concomitant]
  8. VINCRISTINE [Concomitant]
  9. RITUXIMAB [Concomitant]

REACTIONS (5)
  - ANURIA [None]
  - DIALYSIS [None]
  - NEUTROPHIL COUNT DECREASED [None]
  - SEPTIC SHOCK [None]
  - THROMBOCYTOPENIA [None]
